FAERS Safety Report 7041524-0 (Version None)
Quarter: 2010Q4

REPORT INFORMATION
  Report Type: 
  Country: None (occurrence: None)
  Receive Date: 20101013
  Receipt Date: 20100510
  Transmission Date: 20110411
  Serious: No
  Sender: FDA-Public Use
  Company Number: US-ASTRAZENECA-2010SE21222

PATIENT
  Age: 69 Year
  Sex: Female
  Weight: 90.7 kg

DRUGS (10)
  1. SYMBICORT [Suspect]
     Indication: ASTHMA
     Route: 055
     Dates: start: 20100505
  2. TOPROL-XL [Concomitant]
     Indication: HYPERTENSION
  3. CARDURA [Concomitant]
     Indication: HYPERTENSION
  4. SINGULAIR [Concomitant]
     Indication: ASTHMA
  5. ZOCOR [Concomitant]
     Indication: BLOOD CHOLESTEROL INCREASED
  6. XALANTIN [Concomitant]
     Indication: GLAUCOMA
  7. AZOPT [Concomitant]
     Indication: GLAUCOMA
  8. GLIMEPIRIDE [Concomitant]
     Indication: DIABETES MELLITUS
  9. DIGOXIN [Concomitant]
  10. ASPIRIN [Concomitant]

REACTIONS (2)
  - HEART RATE INCREASED [None]
  - PRODUCT TASTE ABNORMAL [None]
